FAERS Safety Report 8815402 (Version 1)
Quarter: 2012Q4

REPORT INFORMATION
  Report Type: 
  Country: DE (occurrence: DE)
  Receive Date: 20120928
  Receipt Date: 20120928
  Transmission Date: 20130627
  Serious: Yes (Hospitalization, Other)
  Sender: FDA-Public Use
  Company Number: DE-CUBIST-2012S1000782

PATIENT

DRUGS (1)
  1. CUBICIN [Suspect]
     Indication: DEVICE RELATED SEPSIS
     Route: 065

REACTIONS (2)
  - Device related sepsis [Unknown]
  - Thrombosis in device [Unknown]
